FAERS Safety Report 16108092 (Version 1)
Quarter: 2019Q1

REPORT INFORMATION
  Report Type: Spontaneous
  Country: US (occurrence: US)
  Receive Date: 20190322
  Receipt Date: 20190322
  Transmission Date: 20190418
  Serious: Yes (Other)
  Sender: FDA-Public Use
  Company Number: US-MYLANLABS-2019M1026960

PATIENT
  Age: 84 Year
  Sex: Female

DRUGS (3)
  1. QUETIAPINE. [Suspect]
     Active Substance: QUETIAPINE
     Indication: PSYCHOTIC DISORDER
     Route: 065
  2. ZIPRASIDONE. [Suspect]
     Active Substance: ZIPRASIDONE
     Dosage: THE MINIMUM DOSE OF ZIPRASIDONE WAS 20 MG/DAY AND MAXIMUM DOSE WAS 40 MG/DAY
     Route: 065
  3. ZIPRASIDONE. [Suspect]
     Active Substance: ZIPRASIDONE
     Indication: PSYCHOTIC DISORDER
     Dosage: THE MINIMUM DOSE OF ZIPRASIDONE WAS 20 MG/DAY AND MAXIMUM DOSE WAS 40 MG/DAY
     Route: 065

REACTIONS (2)
  - Drug ineffective [Unknown]
  - Parkinsonism [Not Recovered/Not Resolved]
